FAERS Safety Report 16032498 (Version 1)
Quarter: 2019Q1

REPORT INFORMATION
  Report Type: Spontaneous
  Country: US (occurrence: US)
  Receive Date: 20190304
  Receipt Date: 20190304
  Transmission Date: 20190418
  Serious: Yes (Other)
  Sender: FDA-Public Use
  Company Number: US-ROCHE-2275920

PATIENT
  Age: 60 Year
  Sex: Female

DRUGS (2)
  1. AVASTIN [Suspect]
     Active Substance: BEVACIZUMAB
     Indication: OVARIAN CANCER RECURRENT
     Dosage: 8 CYCLES IN 8 MONTHS.
     Route: 042
     Dates: start: 201701
  2. AVASTIN [Suspect]
     Active Substance: BEVACIZUMAB
     Dosage: 6 CYCLES TO DATE
     Route: 042
     Dates: start: 201810

REACTIONS (1)
  - Ascites [Not Recovered/Not Resolved]

NARRATIVE: CASE EVENT DATE: 201809
